FAERS Safety Report 6826816-X (Version None)
Quarter: 2010Q3

REPORT INFORMATION
  Report Type: 
  Country: None (occurrence: None)
  Receive Date: 20100709
  Receipt Date: 20100629
  Transmission Date: 20110219
  Serious: Yes (Other)
  Sender: FDA-Public Use
  Company Number: JP-ROCHE-696807

PATIENT
  Sex: Male
  Weight: 63 kg

DRUGS (14)
  1. TOCILIZUMAB [Suspect]
     Indication: RHEUMATOID ARTHRITIS
     Route: 041
  2. TOCILIZUMAB [Suspect]
     Route: 041
     Dates: start: 20090408, end: 20090408
  3. TOCILIZUMAB [Suspect]
     Route: 041
     Dates: start: 20090508, end: 20090508
  4. TOCILIZUMAB [Suspect]
     Route: 041
     Dates: start: 20090601, end: 20090601
  5. PREDNISOLONE [Concomitant]
     Dosage: DOSE FORM: PERORAL AGENT
     Route: 048
  6. METHYCOBAL [Concomitant]
     Dosage: DOSE FORM: PERORAL AGENT
     Route: 048
  7. LOSARTAN POTASSIUM AND HYDROCHLOROTHIAZIDE [Concomitant]
     Route: 048
  8. COMELIAN [Concomitant]
     Dosage: DOSE FORM: PERORAL AGENT
     Route: 048
  9. LOXONIN [Concomitant]
     Dosage: DOSE FORM: PERORAL AGENT
     Route: 048
  10. KREMEZIN [Concomitant]
     Dosage: DOSE FORM: PERORAL AGENT
     Route: 048
  11. TAKEPRON [Concomitant]
     Route: 048
  12. JUVELA N [Concomitant]
     Dosage: DOSE FORM: PERORAL AGENT
     Route: 048
  13. FERROMIA [Concomitant]
     Dosage: DOSE FORM: PERORAL AGENT
     Route: 048
  14. VOLTAREN [Concomitant]
     Dosage: DOSE FORM: SUPPOSITORIAE RECTALE
     Route: 054

REACTIONS (1)
  - LYMPHOPENIA [None]
